FAERS Safety Report 15637776 (Version 1)
Quarter: 2018Q4

REPORT INFORMATION
  Report Type: Spontaneous
  Country: US (occurrence: US)
  Receive Date: 20181120
  Receipt Date: 20181120
  Transmission Date: 20190205
  Serious: No
  Sender: FDA-Public Use
  Company Number: US-JNJFOC-20180621748

PATIENT
  Sex: Female

DRUGS (12)
  1. ALLOPURINOL. [Concomitant]
     Active Substance: ALLOPURINOL
  2. SINGULAIR [Concomitant]
     Active Substance: MONTELUKAST SODIUM
  3. IMBRUVICA [Suspect]
     Active Substance: IBRUTINIB
     Indication: NON-HODGKIN^S LYMPHOMA
     Route: 048
     Dates: start: 20180507, end: 20180612
  4. METFORMIN [Concomitant]
     Active Substance: METFORMIN HYDROCHLORIDE
  5. PRILOSEC [Concomitant]
     Active Substance: OMEPRAZOLE MAGNESIUM
  6. ALBUTEROL. [Concomitant]
     Active Substance: ALBUTEROL
  7. TESSALON [Concomitant]
     Active Substance: BENZONATATE
  8. NORCO [Concomitant]
     Active Substance: ACETAMINOPHEN\HYDROCODONE BITARTRATE
  9. PREDNISONE. [Concomitant]
     Active Substance: PREDNISONE
  10. LOSARTAN. [Concomitant]
     Active Substance: LOSARTAN
  11. MIRALAX [Concomitant]
     Active Substance: POLYETHYLENE GLYCOL 3350
  12. ATROVENT [Concomitant]
     Active Substance: IPRATROPIUM BROMIDE

REACTIONS (1)
  - Adverse drug reaction [Not Recovered/Not Resolved]
